FAERS Safety Report 9034378 (Version 1)
Quarter: 2013Q1

REPORT INFORMATION
  Report Type: Spontaneous
  Country: GR (occurrence: None)
  Receive Date: 20130111
  Receipt Date: 20130111
  Transmission Date: 20140127
  Serious: Yes (Death, Hospitalization, Other)
  Sender: FDA-Public Use
  Company Number: 2013P1000002

PATIENT
  Age: 72 Year
  Sex: Female

DRUGS (5)
  1. LITHIUM [Suspect]
  2. AMLODIPINE [Suspect]
  3. ESCITALOPRAM [Suspect]
  4. BUSPIRONE [Suspect]
  5. IRBESARTAN [Suspect]

REACTIONS (14)
  - Depressed level of consciousness [None]
  - Hyperpyrexia [None]
  - Stupor [None]
  - Pyrexia [None]
  - Tachypnoea [None]
  - Muscle rigidity [None]
  - Leukocytosis [None]
  - Rhabdomyolysis [None]
  - Renal failure acute [None]
  - Haemodialysis [None]
  - Acute respiratory distress syndrome [None]
  - Cardio-respiratory arrest [None]
  - Neurotoxicity [None]
  - Drug interaction [None]
